FAERS Safety Report 10063388 (Version 1)
Quarter: 2014Q2

REPORT INFORMATION
  Report Type: Spontaneous
  Country: SG (occurrence: SG)
  Receive Date: 20140407
  Receipt Date: 20140407
  Transmission Date: 20141212
  Serious: Yes (Life-Threatening, Hospitalization)
  Sender: FDA-Public Use
  Company Number: SG-ACTAVIS-2014-06399

PATIENT
  Age: 58 Year
  Sex: Female

DRUGS (1)
  1. ACLIPAK [Suspect]
     Indication: PRODUCT USED FOR UNKNOWN INDICATION
     Dosage: 120 MG, DAILY
     Route: 042

REACTIONS (1)
  - Bronchospasm [Unknown]
